FAERS Safety Report 5475868-0 (Version None)
Quarter: 2007Q3

REPORT INFORMATION
  Report Type: 
  Country: None (occurrence: None)
  Receive Date: 20070925
  Receipt Date: 20070326
  Transmission Date: 20080115
  Serious: Yes (Other)
  Sender: FDA-Public Use
  Company Number: 2007BH003168

PATIENT
  Age: 31 Year
  Sex: Female

DRUGS (2)
  1. ATIVAN [Suspect]
     Indication: AGITATION
     Dosage: 2 MG; ONCE; IM
     Route: 030
  2. ZYPREXA [Suspect]
     Indication: AGITATION
     Dosage: 10 MG; ONCE; IM
     Route: 030

REACTIONS (1)
  - RESPIRATORY ARREST [None]
